FAERS Safety Report 16362674 (Version 1)
Quarter: 2019Q2

REPORT INFORMATION
  Report Type: Spontaneous
  Country: FR (occurrence: FR)
  Receive Date: 20190528
  Receipt Date: 20190528
  Transmission Date: 20190711
  Serious: Yes (Hospitalization, Other)
  Sender: FDA-Public Use
  Company Number: FR-BAYER-2018-197425

PATIENT
  Age: 52 Year
  Sex: Female
  Weight: 58 kg

DRUGS (13)
  1. ANDROCUR [Suspect]
     Active Substance: CYPROTERONE ACETATE
     Indication: CONTRACEPTION
     Dosage: UNK
     Route: 048
     Dates: start: 1998, end: 1999
  2. LUTERAN [Concomitant]
     Active Substance: CHLORMADINONE ACETATE
     Dosage: 1 DF, QD
     Dates: start: 20141107, end: 2015
  3. OROMONE [Concomitant]
     Active Substance: ESTRADIOL
     Dosage: 1 MG, UNK
     Dates: start: 200507, end: 2011
  4. CYCLEANE [Concomitant]
     Active Substance: DESOGESTREL\ETHINYL ESTRADIOL
     Dosage: UNK
     Dates: start: 2000, end: 2004
  5. BOTOX [Concomitant]
     Active Substance: ONABOTULINUMTOXINA
     Dosage: 35 IU, Q3MON
  6. ANDROCUR [Suspect]
     Active Substance: CYPROTERONE ACETATE
     Indication: CONTRACEPTION
     Dosage: 0.5 DF
     Dates: start: 2005, end: 20150618
  7. OROMONE [Concomitant]
     Active Substance: ESTRADIOL
     Dosage: 1 MG, UNK
     Dates: start: 201208
  8. MIRENA [Suspect]
     Active Substance: LEVONORGESTREL
     Dosage: 20 MCG/24HR, CONT
     Route: 015
     Dates: start: 2004, end: 200507
  9. ZOMIG [Concomitant]
     Active Substance: ZOLMITRIPTAN
     Indication: MIGRAINE
     Dosage: 2.5 MG, UNK
     Route: 048
  10. OROMONE [Concomitant]
     Active Substance: ESTRADIOL
     Dosage: UNK
     Dates: start: 199902
  11. ANDROCUR [Suspect]
     Active Substance: CYPROTERONE ACETATE
     Indication: CONTRACEPTION
     Dosage: UNK
     Route: 048
     Dates: start: 2000, end: 2004
  12. MIRENA [Suspect]
     Active Substance: LEVONORGESTREL
     Dosage: 20 MCG/24HR, CONT
     Route: 015
     Dates: start: 201506
  13. TRINORDIOL [Concomitant]
     Active Substance: ETHINYL ESTRADIOL\LEVONORGESTREL
     Indication: HYPERANDROGENISM
     Dosage: UNK
     Dates: start: 199806, end: 1999

REACTIONS (15)
  - Squamous cell carcinoma [None]
  - Cancer surgery [None]
  - Skin disorder [None]
  - Dysarthria [Recovered/Resolved with Sequelae]
  - Meningioma [Recovered/Resolved with Sequelae]
  - Poor quality sleep [None]
  - Incorrect product administration duration [None]
  - Malaise [Recovered/Resolved with Sequelae]
  - Headache [Not Recovered/Not Resolved]
  - Fatigue [None]
  - Facial paralysis [Recovered/Resolved with Sequelae]
  - Vomiting [Recovered/Resolved with Sequelae]
  - Product use in unapproved indication [None]
  - Aphasia [Recovered/Resolved with Sequelae]
  - Headache [None]

NARRATIVE: CASE EVENT DATE: 1999
